FAERS Safety Report 15274356 (Version 1)
Quarter: 2018Q3

REPORT INFORMATION
  Report Type: Spontaneous
  Country: FR (occurrence: FR)
  Receive Date: 20180814
  Receipt Date: 20180814
  Transmission Date: 20181010
  Serious: Yes (Hospitalization)
  Sender: FDA-Public Use
  Company Number: FR-ROCHE-2169785

PATIENT
  Age: 75 Year
  Sex: Female

DRUGS (1)
  1. MABTHERA [Suspect]
     Active Substance: RITUXIMAB
     Indication: SPLENIC MARGINAL ZONE LYMPHOMA
     Route: 041
     Dates: start: 20171211, end: 20180705

REACTIONS (1)
  - Anal cancer [Not Recovered/Not Resolved]

NARRATIVE: CASE EVENT DATE: 2018
